FAERS Safety Report 16890516 (Version 1)
Quarter: 2019Q4

REPORT INFORMATION
  Report Type: Spontaneous
  Country: JP (occurrence: JP)
  Receive Date: 20191007
  Receipt Date: 20191007
  Transmission Date: 20200122
  Serious: Yes (Hospitalization, Other)
  Sender: FDA-Public Use
  Company Number: JP-GLAXOSMITHKLINE-JP2019JPN177324

PATIENT
  Age: 71 Year
  Sex: Female

DRUGS (1)
  1. VALTREX [Suspect]
     Active Substance: VALACYCLOVIR HYDROCHLORIDE
     Indication: HERPES ZOSTER
     Dosage: 500 MG, 1D
     Route: 048

REACTIONS (6)
  - Asterixis [Recovering/Resolving]
  - Dyslalia [Recovering/Resolving]
  - Toxic encephalopathy [Recovering/Resolving]
  - Basilar artery stenosis [Unknown]
  - Altered state of consciousness [Recovering/Resolving]
  - Bradykinesia [Recovering/Resolving]
